FAERS Safety Report 16156363 (Version 8)
Quarter: 2021Q2

REPORT INFORMATION
  Report Type: Report from Study
  Country: ES (occurrence: ES)
  Receive Date: 20190404
  Receipt Date: 20210601
  Transmission Date: 20210716
  Serious: Yes (Hospitalization, Other)
  Sender: FDA-Public Use
  Company Number: ES-SA-2017SA148451

PATIENT
  Age: 40 Year
  Sex: Female
  Weight: 55 kg

DRUGS (7)
  1. TAMSULOSIN [Concomitant]
     Active Substance: TAMSULOSIN
     Indication: NEUROGENIC BLADDER
     Dosage: UNK, UNK
     Route: 065
     Dates: start: 20090716
  2. ALEMTUZUMAB [Suspect]
     Active Substance: ALEMTUZUMAB
     Dosage: 12 MG, QD
     Route: 041
     Dates: start: 20170418, end: 20170420
  3. ALEMTUZUMAB [Suspect]
     Active Substance: ALEMTUZUMAB
     Indication: RELAPSING MULTIPLE SCLEROSIS
     Dosage: 12 MG, QD
     Route: 041
     Dates: start: 20160425, end: 20160429
  4. ESCITALOPRAM [Concomitant]
     Active Substance: ESCITALOPRAM OXALATE
     Dosage: UNK, UNK
     Route: 065
     Dates: start: 20130211
  5. TAMSULOSIN [Concomitant]
     Active Substance: TAMSULOSIN
     Dosage: 0.4 MG
     Route: 048
     Dates: start: 20170828
  6. BACLOFEN. [Concomitant]
     Active Substance: BACLOFEN
     Dosage: UNK, UNK
     Route: 065
     Dates: start: 20120220
  7. FAMPRIDINE [Concomitant]
     Active Substance: DALFAMPRIDINE
     Dosage: UNK, UNK
     Route: 065
     Dates: start: 20140612

REACTIONS (8)
  - Influenza [Recovered/Resolved]
  - Abdominal lymphadenopathy [Recovered/Resolved]
  - Dysuria [Recovered/Resolved]
  - Thrombocytopenia [Recovering/Resolving]
  - Flushing [Recovered/Resolved]
  - Malignant melanoma [Not Recovered/Not Resolved]
  - Anaemia [Recovering/Resolving]
  - Dermatitis allergic [Recovered/Resolved]

NARRATIVE: CASE EVENT DATE: 20170420
